FAERS Safety Report 4828217-2 (Version None)
Quarter: 2005Q4

REPORT INFORMATION
  Report Type: 
  Country: None (occurrence: None)
  Receive Date: 20051115
  Receipt Date: 20041004
  Transmission Date: 20060501
  Serious: No
  Sender: FDA-Public Use
  Company Number: US-BRISTOL-MYERS SQUIBB COMPANY-12721619

PATIENT
  Age: 52 Year
  Sex: Male
  Weight: 63 kg

DRUGS (5)
  1. SUSTIVA [Suspect]
     Indication: HIV TEST POSITIVE
     Route: 048
     Dates: start: 20041003
  2. TRUVADA [Concomitant]
     Dates: start: 20041003
  3. ELAVIL [Concomitant]
  4. VITAMIN B COMPLEX CAP [Concomitant]
  5. MULTI-VITAMIN [Concomitant]

REACTIONS (2)
  - DIZZINESS [None]
  - INSOMNIA [None]
